FAERS Safety Report 4636005-5 (Version None)
Quarter: 2005Q2

REPORT INFORMATION
  Report Type: 
  Country: None (occurrence: None)
  Receive Date: 20050415
  Receipt Date: 20050328
  Transmission Date: 20051028
  Serious: Yes (Hospitalization)
  Sender: FDA-Public Use
  Company Number: US-SANOFI-SYNTHELABO-F01200500472

PATIENT
  Sex: Female
  Weight: 105.5 kg

DRUGS (16)
  1. OXALIPLATIN [Suspect]
     Indication: NON-SMALL CELL LUNG CANCER
     Route: 042
     Dates: start: 20050315, end: 20050315
  2. GEMCITABINE [Suspect]
     Route: 042
     Dates: start: 20050322, end: 20050322
  3. IBUPROFEN [Concomitant]
     Indication: PAIN
     Dosage: 400-800 MG PRN
     Route: 048
     Dates: start: 20040101
  4. PRAVASTATIN [Concomitant]
     Indication: HYPERCHOLESTEROLAEMIA
     Dosage: 20 MG
     Route: 048
     Dates: start: 19990101, end: 20050222
  5. FAMOTIDINE [Concomitant]
     Indication: NAUSEA
     Route: 048
     Dates: start: 20041122
  6. FAMOTIDINE [Concomitant]
     Indication: DYSPEPSIA
     Route: 048
     Dates: start: 20041122
  7. LEVOTHYROXINE SODIUM [Concomitant]
     Indication: HYPOTHYROIDISM
     Route: 048
     Dates: start: 20041122
  8. ONDANSETRON HYDROCHLORIDE [Concomitant]
     Indication: PROPHYLAXIS OF NAUSEA AND VOMITING
     Dosage: 8 MG
     Route: 048
     Dates: start: 20041130, end: 20041207
  9. WARFARIN SODIUM [Concomitant]
     Indication: ANTICOAGULANT THERAPY
     Dosage: 1 MG
     Route: 048
     Dates: start: 20041130
  10. GRANISETRON [Concomitant]
     Indication: PROPHYLAXIS OF NAUSEA AND VOMITING
     Dosage: 1 MG
     Route: 048
     Dates: start: 20041207
  11. CLOTRIMAZOLE [Concomitant]
     Indication: CANDIDIASIS
     Dosage: 10 MG
     Route: 048
     Dates: start: 20041207
  12. MEGESTROL ACETATE [Concomitant]
     Indication: ANOREXIA
     Route: 048
     Dates: start: 20041207
  13. DARBEPOETIN ALFA [Concomitant]
     Indication: HAEMOGLOBIN DECREASED
     Dosage: 300 MCG
     Route: 058
     Dates: start: 20041207
  14. ACETAMINOPHEN [Concomitant]
     Indication: PAIN
     Dosage: 325 MG
     Route: 048
     Dates: start: 20041221
  15. VANCOMYCIN [Concomitant]
     Indication: INFECTION
     Dosage: 1 G
     Route: 042
     Dates: start: 20050309
  16. VANCOMYCIN [Concomitant]
     Indication: CELLULITIS
     Dosage: 1 G
     Route: 042
     Dates: start: 20050309

REACTIONS (8)
  - ASTHENIA [None]
  - ATRIAL FIBRILLATION [None]
  - DEHYDRATION [None]
  - HYPOTENSION [None]
  - LEUKOPENIA [None]
  - PANCYTOPENIA [None]
  - THROMBOCYTOPENIA [None]
  - THROMBOTIC THROMBOCYTOPENIC PURPURA [None]
